FAERS Safety Report 19410024 (Version 5)
Quarter: 2022Q1

REPORT INFORMATION
  Report Type: Report from Study
  Country: US (occurrence: US)
  Receive Date: 20210614
  Receipt Date: 20220124
  Transmission Date: 20220423
  Serious: No
  Sender: FDA-Public Use
  Company Number: NVSC2021US126495

PATIENT
  Sex: Female

DRUGS (3)
  1. COSENTYX [Suspect]
     Active Substance: SECUKINUMAB
     Indication: Psoriasis
     Dosage: 300 MG
     Route: 058
     Dates: start: 20210210
  2. COSENTYX [Suspect]
     Active Substance: SECUKINUMAB
     Indication: Psoriatic arthropathy
  3. VALSARTAN [Suspect]
     Active Substance: VALSARTAN
     Indication: Product used for unknown indication
     Dosage: 80 MG
     Route: 065

REACTIONS (12)
  - Abdominal discomfort [Recovering/Resolving]
  - Insomnia [Unknown]
  - Pruritus [Unknown]
  - Abdominal pain [Recovering/Resolving]
  - Hot flush [Recovering/Resolving]
  - Gastrooesophageal reflux disease [Recovering/Resolving]
  - Rash [Unknown]
  - Rash pruritic [Unknown]
  - Rash macular [Unknown]
  - Skin irritation [Unknown]
  - Blood pressure increased [Not Recovered/Not Resolved]
  - Urticaria [Unknown]
